FAERS Safety Report 20470240 (Version 2)
Quarter: 2022Q1

REPORT INFORMATION
  Report Type: Spontaneous
  Country: CY (occurrence: CY)
  Receive Date: 20220214
  Receipt Date: 20220226
  Transmission Date: 20220424
  Serious: Yes (Death)
  Sender: FDA-Public Use
  Company Number: CY-AMGEN-CYPSP2021117430

PATIENT
  Sex: Female
  Weight: 51 kg

DRUGS (41)
  1. TRASTUZUMAB [Suspect]
     Active Substance: TRASTUZUMAB
     Indication: HER2 positive breast cancer
     Dosage: 330 MILLIGRAM, Q3WK
     Route: 042
     Dates: start: 20161104
  2. TRASTUZUMAB [Suspect]
     Active Substance: TRASTUZUMAB
     Dosage: 2 MILLIGRAM/KILOGRAM, Q3WK
     Route: 042
     Dates: start: 20180518, end: 20190814
  3. TRASTUZUMAB [Suspect]
     Active Substance: TRASTUZUMAB
     Dosage: 6 MILLIGRAM/KILOGRAM, Q3WK
     Route: 042
     Dates: start: 20200316, end: 20200625
  4. DOCETAXEL [Suspect]
     Active Substance: DOCETAXEL
     Indication: Breast cancer
     Dosage: 80 (MILLIGRAM PER SQUARE METRE) Q3WK
     Route: 042
     Dates: start: 20190523
  5. FLUOROURACIL [Suspect]
     Active Substance: FLUOROURACIL
     Indication: HER2 positive breast cancer
     Dosage: 600 MILLIGRAM PER SQUARE METRE
     Route: 042
     Dates: start: 20191216
  6. ADO-TRASTUZUMAB EMTANSINE [Suspect]
     Active Substance: ADO-TRASTUZUMAB EMTANSINE
     Indication: HER2 positive breast cancer
     Dosage: 3.6 (MILLIGRAM PER KILOGRAM), Q3WK
     Route: 042
     Dates: start: 20170403
  7. EPIRUBICIN [Suspect]
     Active Substance: EPIRUBICIN
     Indication: HER2 positive breast cancer
     Dosage: 80 MILLIGRAM PER SQUARE METRE, Q3WK
     Route: 042
     Dates: start: 20190930
  8. VINORELBINE [Suspect]
     Active Substance: VINORELBINE TARTRATE
     Indication: HER2 positive breast cancer
     Dosage: 25 MILLIGRAM PER SQUARE METRE
     Route: 042
     Dates: start: 20180511
  9. CAPECITABINE [Suspect]
     Active Substance: CAPECITABINE
     Indication: HER2 positive breast cancer
     Dosage: 1650 MILLIGRAM
     Route: 048
     Dates: start: 20161109
  10. CYCLOPHOSPHAMIDE [Suspect]
     Active Substance: CYCLOPHOSPHAMIDE
     Indication: HER2 positive breast cancer
     Dosage: 500 (MILLIGRAM PER SQUARE METRE), Q3WK
     Route: 042
     Dates: start: 20190930
  11. GEMCITABINE [Suspect]
     Active Substance: GEMCITABINE
     Indication: HER2 positive breast cancer
     Dosage: 1000 (MILLIGRAM PER SQUARE METRE)
     Route: 042
     Dates: start: 20181003
  12. CARBOPLATIN [Suspect]
     Active Substance: CARBOPLATIN
     Indication: HER2 positive breast cancer
     Dosage: 560 MILLIGRAM, Q3WK
     Route: 042
     Dates: start: 20181003
  13. LAPATINIB [Suspect]
     Active Substance: LAPATINIB
     Indication: HER2 positive breast cancer
     Dosage: 75 MILLIGRAM
     Route: 048
     Dates: start: 20180212
  14. METHOTREXATE [Suspect]
     Active Substance: METHOTREXATE
     Indication: HER2 positive breast cancer
     Dosage: 40 MILLIGRAM PER SQUARE METRE
     Route: 042
     Dates: start: 20191216
  15. DOXORUBICIN [Suspect]
     Active Substance: DOXORUBICIN
     Indication: HER2 positive breast cancer
     Dosage: 40 MILLIGRAM, Q4WK
     Route: 042
     Dates: start: 20190328
  16. UREA [Concomitant]
     Active Substance: UREA
     Indication: Palmar-plantar erythrodysaesthesia syndrome
     Dosage: UNK
  17. UREA [Concomitant]
     Active Substance: UREA
     Indication: Dry skin
  18. PYRIDOXINE [Concomitant]
     Active Substance: PYRIDOXINE
     Indication: Palmar-plantar erythrodysaesthesia syndrome
     Dosage: UNK
     Dates: start: 20170126, end: 20170330
  19. MOTILIUM [Concomitant]
     Active Substance: DOMPERIDONE
     Indication: Nausea
     Dosage: UNK
     Dates: start: 20180507, end: 20190830
  20. DEXPANTHENOL [Concomitant]
     Active Substance: DEXPANTHENOL
     Indication: Palmar-plantar erythrodysaesthesia syndrome
     Dosage: UNK
     Dates: start: 20170105, end: 20170330
  21. OMEPRAZOLE [Concomitant]
     Active Substance: OMEPRAZOLE
     Dosage: UNK
     Dates: start: 20180511
  22. MAGNESIUM [Concomitant]
     Active Substance: MAGNESIUM
     Dosage: UNK
     Dates: start: 20180706
  23. IBUPROFEN [Concomitant]
     Active Substance: IBUPROFEN
     Indication: Bone pain
     Dosage: UNK
     Dates: start: 20180405, end: 20180410
  24. IBUPROFEN [Concomitant]
     Active Substance: IBUPROFEN
     Indication: Headache
  25. CALCIUM [Concomitant]
     Active Substance: CALCIUM
     Dosage: UNK
     Dates: start: 20170306
  26. ACETAMINOPHEN [Concomitant]
     Active Substance: ACETAMINOPHEN
     Indication: Headache
     Dosage: UNK
     Dates: start: 20161109
  27. ACETAMINOPHEN [Concomitant]
     Active Substance: ACETAMINOPHEN
     Dosage: UNK
     Dates: start: 20180525
  28. ZOLEDRONIC ACID [Concomitant]
     Active Substance: ZOLEDRONIC ACID
     Dosage: UNK
     Dates: start: 20161109
  29. SULFAMETHOXAZOLE\TRIMETHOPRIM [Concomitant]
     Active Substance: SULFAMETHOXAZOLE\TRIMETHOPRIM
     Dosage: UNK
     Dates: start: 20190612
  30. GRANULOCYTE COLONY-STIMULATING FACTOR NOS [Concomitant]
     Active Substance: GRANULOCYTE COLONY-STIMULATING FACTOR NOS
     Dosage: UNK
     Dates: start: 20191003, end: 20191206
  31. DEXAMETHASONE [Concomitant]
     Active Substance: DEXAMETHASONE
     Indication: Bone pain
     Dosage: UNK
     Dates: start: 20180405, end: 20180410
  32. DEXAMETHASONE [Concomitant]
     Active Substance: DEXAMETHASONE
     Indication: Dizziness
     Dosage: UNK
     Dates: start: 20190428, end: 20200315
  33. CANNABIS SATIVA SUBSP. INDICA TOP [Concomitant]
     Active Substance: CANNABIS SATIVA SUBSP. INDICA TOP
     Dosage: UNK
     Dates: start: 20190606
  34. KEPPRA [Concomitant]
     Active Substance: LEVETIRACETAM
     Dosage: UNK
     Dates: start: 20190612, end: 20191216
  35. EMEND [Concomitant]
     Active Substance: APREPITANT
     Dosage: UNK
     Dates: start: 20190930
  36. ZOFRAN [Concomitant]
     Active Substance: ONDANSETRON HYDROCHLORIDE
     Dosage: UNK
     Dates: start: 20190930, end: 20191206
  37. LEUCOVORIN [Concomitant]
     Active Substance: LEUCOVORIN
     Dosage: UNK
     Dates: start: 20191214, end: 20200421
  38. HYDROCORTISONE [Concomitant]
     Active Substance: HYDROCORTISONE
     Indication: Hypersensitivity
     Dosage: UNK
     Dates: start: 20190328, end: 20190328
  39. ZANTAC [Concomitant]
     Active Substance: RANITIDINE HYDROCHLORIDE
     Indication: Hypersensitivity
     Dosage: UNK
     Dates: start: 20190328, end: 20190328
  40. VALPROATE SODIUM [Concomitant]
     Active Substance: VALPROATE SODIUM
     Dosage: UNK
     Dates: start: 20190930, end: 20191206
  41. LAMICTAL [Concomitant]
     Active Substance: LAMOTRIGINE
     Indication: Muscle spasticity
     Dosage: UNK
     Dates: start: 20200217, end: 20200308

REACTIONS (11)
  - Disease progression [Fatal]
  - Constipation [Not Recovered/Not Resolved]
  - Constipation [Recovered/Resolved]
  - Diplopia [Not Recovered/Not Resolved]
  - Skin hyperpigmentation [Recovered/Resolved]
  - Anxiety [Recovered/Resolved]
  - Vomiting [Not Recovered/Not Resolved]
  - Nausea [Recovered/Resolved]
  - Paraesthesia [Not Recovered/Not Resolved]
  - Headache [Not Recovered/Not Resolved]
  - Fatigue [Not Recovered/Not Resolved]

NARRATIVE: CASE EVENT DATE: 20180525
